FAERS Safety Report 7216105-6 (Version None)
Quarter: 2011Q1

REPORT INFORMATION
  Report Type: 
  Country: None (occurrence: None)
  Receive Date: 20110105
  Receipt Date: 20110105
  Transmission Date: 20110831
  Serious: Yes (Hospitalization)
  Sender: FDA-Public Use
  Company Number: None

PATIENT
  Age: 79 Year
  Sex: Female
  Weight: 63.5036 kg

DRUGS (2)
  1. FOSAMAX [Suspect]
     Indication: OSTEOPOROSIS
     Dates: start: 20010101, end: 20080131
  2. ALENDRONATE SODIUM [Suspect]
     Indication: OSTEOPOROSIS
     Dosage: 1 TABLET WEEKLY PO
     Route: 048
     Dates: start: 20080201, end: 20101218

REACTIONS (6)
  - DRUG LEVEL DECREASED [None]
  - GAIT DISTURBANCE [None]
  - FALL [None]
  - MULTIPLE FRACTURES [None]
  - PAIN IN EXTREMITY [None]
  - FEMUR FRACTURE [None]
